FAERS Safety Report 17033479 (Version 3)
Quarter: 2020Q3

REPORT INFORMATION
  Report Type: Report from Study
  Country: US (occurrence: US)
  Receive Date: 20191114
  Receipt Date: 20200727
  Transmission Date: 20201102
  Serious: Yes (Other)
  Sender: FDA-Public Use
  Company Number: NVSC2019US036200

PATIENT
  Sex: Male

DRUGS (1)
  1. ENTRESTO [Suspect]
     Active Substance: SACUBITRIL\VALSARTAN
     Indication: CARDIAC FAILURE
     Dosage: 1 DF(SACUBITRIL 24MG AND VALSARTAN 26MG), BID
     Route: 065
     Dates: start: 20191108

REACTIONS (5)
  - Fatigue [Unknown]
  - Asthenia [Unknown]
  - Mitochondrial myopathy [Unknown]
  - Weight increased [Not Recovered/Not Resolved]
  - Neuromyopathy [Unknown]
